FAERS Safety Report 8435260-3 (Version None)
Quarter: 2012Q2

REPORT INFORMATION
  Report Type: 
  Country: None (occurrence: None)
  Receive Date: 20120614
  Receipt Date: 20120531
  Transmission Date: 20120825
  Serious: Yes (Other)
  Sender: FDA-Public Use
  Company Number: CL-MYLANLABS-2012S1011436

PATIENT
  Age: 74 Year
  Sex: Female

DRUGS (6)
  1. VANCOMYCIN [Concomitant]
     Route: 065
  2. CEFTRIAXONE [Concomitant]
     Route: 065
  3. LEVETIRACETAM [Concomitant]
     Indication: STATUS EPILEPTICUS
     Route: 065
  4. PHENYTOIN [Concomitant]
     Indication: STATUS EPILEPTICUS
     Route: 065
  5. TOPIRAMATE [Concomitant]
     Indication: STATUS EPILEPTICUS
     Route: 065
  6. AMPICILLIN AND SULBACTAM [Suspect]
     Indication: PNEUMONIA
     Route: 065

REACTIONS (1)
  - LINEAR IGA DISEASE [None]
